FAERS Safety Report 7610963-9 (Version None)
Quarter: 2011Q3

REPORT INFORMATION
  Report Type: 
  Country: None (occurrence: None)
  Receive Date: 20110707
  Receipt Date: 20110622
  Transmission Date: 20111222
  Serious: Yes (Other)
  Sender: FDA-Public Use
  Company Number: 2011AP001290

PATIENT
  Age: 61 Year
  Sex: Male

DRUGS (7)
  1. RAMIPRIL [Concomitant]
  2. BETAMETHASONE VALERATE [Concomitant]
  3. AMLODIPINE BESYLATE [Suspect]
     Indication: PRODUCT USED FOR UNKNOWN INDICATION
     Dates: start: 20110325
  4. DIHYDROCODEINE BITARTRATE INJ [Concomitant]
  5. CETOSTEARYL ALCOHOL (CETOSTEARYL ALCOHOL) [Concomitant]
  6. SIMVASTATIN [Concomitant]
  7. ACETAMINOPHEN [Concomitant]

REACTIONS (2)
  - ARTHRALGIA [None]
  - JOINT SWELLING [None]
